FAERS Safety Report 12611414 (Version 1)
Quarter: 2016Q3

REPORT INFORMATION
  Report Type: Spontaneous
  Country: US (occurrence: US)
  Receive Date: 20160801
  Receipt Date: 20160801
  Transmission Date: 20161109
  Serious: No
  Sender: FDA-Public Use
  Company Number: US-MEDA-2016070086

PATIENT
  Sex: Male

DRUGS (1)
  1. PROCTOFOAM HC [Suspect]
     Active Substance: HYDROCORTISONE ACETATE\PRAMOXINE HYDROCHLORIDE
     Indication: HAEMORRHOIDS
     Route: 061
     Dates: start: 201607, end: 201607

REACTIONS (3)
  - Product quality issue [Unknown]
  - Anal haemorrhage [Unknown]
  - Anal injury [Unknown]

NARRATIVE: CASE EVENT DATE: 201607
